FAERS Safety Report 15722644 (Version 1)
Quarter: 2018Q4

REPORT INFORMATION
  Report Type: Spontaneous
  Country: GB (occurrence: GB)
  Receive Date: 20181214
  Receipt Date: 20181214
  Transmission Date: 20190205
  Serious: Yes (Hospitalization, Other)
  Sender: FDA-Public Use
  Company Number: GB-TEVA-2018-GB-987100

PATIENT
  Age: 86 Year
  Sex: Female

DRUGS (4)
  1. LISINOPRIL 40 MG [Concomitant]
     Active Substance: LISINOPRIL
  2. CARVEDILOL 3.125 MG [Concomitant]
     Active Substance: CARVEDILOL
  3. ISOSORBIDE MONONITRATE 60 MG [Concomitant]
     Active Substance: ISOSORBIDE MONONITRATE
  4. ALMUS WARFARIN 3 MG TABLETS [Suspect]
     Active Substance: WARFARIN SODIUM
     Indication: PRODUCT USED FOR UNKNOWN INDICATION
     Route: 065

REACTIONS (3)
  - Rash vesicular [Unknown]
  - Malaise [Unknown]
  - Haemorrhage [Unknown]
